FAERS Safety Report 25667477 (Version 4)
Quarter: 2025Q3

REPORT INFORMATION
  Report Type: Spontaneous
  Country: JP (occurrence: JP)
  Receive Date: 20250811
  Receipt Date: 20250917
  Transmission Date: 20251021
  Serious: Yes (Hospitalization, Other)
  Sender: TAKEDA
  Company Number: JP-TAKEDA-2025TJP008097

PATIENT
  Sex: Female
  Weight: 54 kg

DRUGS (17)
  1. TRINTELLIX [Suspect]
     Active Substance: VORTIOXETINE HYDROBROMIDE
     Indication: Depression
     Dosage: 10 MILLIGRAM, QD
     Dates: end: 20250629
  2. TRINTELLIX [Suspect]
     Active Substance: VORTIOXETINE HYDROBROMIDE
     Dosage: 20 MILLIGRAM, QD
     Dates: start: 20250630
  3. TRINTELLIX [Suspect]
     Active Substance: VORTIOXETINE HYDROBROMIDE
     Dosage: 10 MILLIGRAM, QD
     Dates: end: 20250724
  4. REXULTI [Concomitant]
     Active Substance: BREXPIPRAZOLE
     Indication: Depression
     Dosage: 0.5 MILLIGRAM, QD
     Dates: start: 20250714, end: 20250801
  5. HERBALS [Concomitant]
     Active Substance: HERBALS
     Dosage: 2.5 GRAM, TID
  6. HERBALS [Concomitant]
     Active Substance: HERBALS
     Indication: Conversion disorder
     Dosage: 2.5 GRAM, TID
     Dates: start: 20250711
  7. BROTIZOLAM [Concomitant]
     Active Substance: BROTIZOLAM
     Indication: Insomnia
     Dosage: 0.25 MILLIGRAM, QD
  8. LORAZEPAM [Concomitant]
     Active Substance: LORAZEPAM
     Indication: Anxiety disorder
     Dosage: 0.5 MILLIGRAM, TID
  9. EDOXABAN TOSYLATE [Concomitant]
     Active Substance: EDOXABAN TOSYLATE
     Indication: Atrial fibrillation
     Dosage: 30 MILLIGRAM, QD
  10. OLMESARTAN MEDOXOMIL [Concomitant]
     Active Substance: OLMESARTAN MEDOXOMIL
     Indication: Cardiac failure
     Dosage: 10 MILLIGRAM, QD
  11. NIFEDIPINE [Concomitant]
     Active Substance: NIFEDIPINE
     Indication: Hypertension
     Dosage: 10 MILLIGRAM, BID
  12. CARVEDILOL [Concomitant]
     Active Substance: CARVEDILOL
  13. FLECAINIDE ACETATE [Concomitant]
     Active Substance: FLECAINIDE ACETATE
  14. ATORVASTATIN [Concomitant]
     Active Substance: ATORVASTATIN
  15. ESOMEPRAZOLE [Concomitant]
     Active Substance: ESOMEPRAZOLE
  16. SENNOSIDES A AND B [Concomitant]
     Active Substance: SENNOSIDES A AND B
  17. ELDECALCITOL [Concomitant]
     Active Substance: ELDECALCITOL

REACTIONS (1)
  - Inappropriate antidiuretic hormone secretion [Recovered/Resolved]

NARRATIVE: CASE EVENT DATE: 20250711
